FAERS Safety Report 7091194-0 (Version None)
Quarter: 2010Q4

REPORT INFORMATION
  Report Type: 
  Country: None (occurrence: None)
  Receive Date: 20101109
  Receipt Date: 20101104
  Transmission Date: 20110411
  Serious: Yes (Hospitalization)
  Sender: FDA-Public Use
  Company Number: US-GILEAD-2010-0033257

PATIENT
  Sex: Female

DRUGS (2)
  1. CAYSTON [Suspect]
     Indication: CYSTIC FIBROSIS
     Route: 055
  2. PREDNISONE [Concomitant]

REACTIONS (2)
  - INFECTION [None]
  - PALPITATIONS [None]
